FAERS Safety Report 11363018 (Version 1)
Quarter: 2015Q3

REPORT INFORMATION
  Report Type: Spontaneous
  Country: US (occurrence: None)
  Receive Date: 20150807
  Receipt Date: 20150807
  Transmission Date: 20151125
  Serious: Yes (Hospitalization)
  Sender: FDA-Public Use
  Company Number: 201500223

PATIENT
  Sex: Female

DRUGS (3)
  1. PHOCYTAN [Suspect]
     Active Substance: .ALPHA.-GLUCOSE-1-PHOSPHATE
     Indication: PARENTERAL NUTRITION
     Route: 042
     Dates: start: 20150523, end: 20150524
  2. WATER FOR INJECTION [Concomitant]
     Active Substance: WATER
  3. GLUCOSE [Suspect]
     Active Substance: DEXTROSE
     Indication: PARENTERAL NUTRITION
     Route: 042
     Dates: start: 20150523, end: 20150524

REACTIONS (5)
  - Hypercalcaemia [None]
  - Accidental overdose [None]
  - Hyperglycaemia [None]
  - Hyperkalaemia [None]
  - Metabolic acidosis [None]

NARRATIVE: CASE EVENT DATE: 20150523
